FAERS Safety Report 7590668-3 (Version None)
Quarter: 2011Q3

REPORT INFORMATION
  Report Type: 
  Country: None (occurrence: None)
  Receive Date: 20110705
  Receipt Date: 20110623
  Transmission Date: 20111222
  Serious: Yes (Other)
  Sender: FDA-Public Use
  Company Number: PHHY2011GB55669

PATIENT
  Age: 68 Year
  Sex: Male

DRUGS (6)
  1. DICLOFENAC SODIUM [Concomitant]
  2. LACTULOSE [Concomitant]
  3. VANCOMYCIN [Suspect]
     Dosage: 1 G, BID
     Route: 042
     Dates: start: 20110416, end: 20110613
  4. CODEINE [Concomitant]
  5. LISINOPRIL [Concomitant]
  6. ACETAMINOPHEN [Concomitant]

REACTIONS (3)
  - HYPOTENSION [None]
  - TACHYCARDIA [None]
  - CHILLS [None]
